FAERS Safety Report 6405649-2 (Version None)
Quarter: 2009Q4

REPORT INFORMATION
  Report Type: 
  Country: None (occurrence: None)
  Receive Date: 20091019
  Receipt Date: 20091014
  Transmission Date: 20100525
  Serious: Yes (Other)
  Sender: FDA-Public Use
  Company Number: B0590588A

PATIENT

DRUGS (7)
  1. 3TC [Suspect]
     Indication: ANTIRETROVIRAL THERAPY
     Route: 065
  2. VIDEX [Suspect]
     Indication: DRUG USE FOR UNKNOWN INDICATION
     Route: 065
  3. SUSTIVA [Suspect]
     Indication: ANTIRETROVIRAL THERAPY
     Route: 065
  4. ZERIT [Suspect]
     Indication: DRUG USE FOR UNKNOWN INDICATION
     Route: 065
  5. SAW PALMETTO [Suspect]
     Indication: DRUG USE FOR UNKNOWN INDICATION
     Route: 065
  6. MILK THISTLE [Suspect]
     Indication: DRUG USE FOR UNKNOWN INDICATION
     Route: 065
  7. MULTI-VITAMINS [Suspect]
     Indication: DRUG USE FOR UNKNOWN INDICATION
     Route: 065

REACTIONS (7)
  - ABNORMAL DREAMS [None]
  - AFFECT LABILITY [None]
  - DRUG INTERACTION [None]
  - GAMMA-GLUTAMYLTRANSFERASE INCREASED [None]
  - HALLUCINATION [None]
  - SUICIDAL IDEATION [None]
  - THINKING ABNORMAL [None]
